FAERS Safety Report 8850752 (Version 1)
Quarter: 2012Q4

REPORT INFORMATION
  Report Type: 
  Country: US (occurrence: US)
  Receive Date: 20121020
  Receipt Date: 20121020
  Transmission Date: 20130627
  Serious: Yes (Other)
  Sender: FDA-Public Use
  Company Number: US-009507513-1210USA004944

PATIENT
  Sex: Female
  Weight: 54.42 kg

DRUGS (3)
  1. VICTRELIS [Suspect]
     Indication: HEPATITIS C
     Dosage: UNK
     Dates: start: 20120527
  2. RIBAVIRIN [Suspect]
     Indication: HEPATITIS C
     Dosage: 2 pills, qd
     Dates: start: 20120429
  3. PEGASYS [Concomitant]
     Indication: HEPATITIS C
     Dosage: 2 piils, qd
     Dates: start: 20120429

REACTIONS (7)
  - Transfusion [Unknown]
  - Depressed mood [Recovered/Resolved]
  - Platelet count decreased [Unknown]
  - Dizziness [Recovered/Resolved]
  - Dysgeusia [Unknown]
  - Decreased appetite [Recovered/Resolved]
  - Weight decreased [Unknown]
